FAERS Safety Report 6904288-4 (Version None)
Quarter: 2010Q3

REPORT INFORMATION
  Report Type: 
  Country: None (occurrence: None)
  Receive Date: 20100804
  Receipt Date: 20090420
  Transmission Date: 20110219
  Serious: No
  Sender: FDA-Public Use
  Company Number: US-PFIZER INC-2009168913

PATIENT
  Sex: Female
  Weight: 48.98 kg

DRUGS (3)
  1. LYRICA [Suspect]
     Indication: NERVE INJURY
     Dosage: 50MG IN MORNING AND 75MG IN THE EVENING
     Route: 048
     Dates: start: 20080801
  2. LYRICA [Suspect]
     Indication: NEUROPATHY PERIPHERAL
  3. LUNESTA [Concomitant]
     Dosage: UNK

REACTIONS (1)
  - APHTHOUS STOMATITIS [None]
